FAERS Safety Report 21599090 (Version 1)
Quarter: 2022Q4

REPORT INFORMATION
  Report Type: Spontaneous
  Country: US (occurrence: US)
  Receive Date: 20221115
  Receipt Date: 20221115
  Transmission Date: 20230113
  Serious: Yes (Other)
  Sender: FDA-Public Use
  Company Number: US-PFIZER INC-PV202200099824

PATIENT
  Sex: Female

DRUGS (13)
  1. IBRANCE [Suspect]
     Active Substance: PALBOCICLIB
     Dosage: 1 DAILY 21 DAYS, 1 WEEK OFF
  2. XGEVA [Suspect]
     Active Substance: DENOSUMAB
     Dosage: UNK
  3. DAILY-VITE [Concomitant]
     Dosage: 400 UG
  4. HAIR SKIN NAILS [Concomitant]
     Dosage: 100 MG
  5. CALCIUM [Concomitant]
     Active Substance: CALCIUM
     Dosage: 500
  6. TYLENOL [Concomitant]
     Active Substance: ACETAMINOPHEN
     Dosage: 325 MG
  7. VITAMIN D3 [Concomitant]
     Active Substance: CHOLECALCIFEROL
     Dosage: 25 UG
  8. ZINC [Concomitant]
     Active Substance: ZINC
     Dosage: 50 MG
  9. CLINDAMYCIN HYDROCHLORIDE [Concomitant]
     Active Substance: CLINDAMYCIN HYDROCHLORIDE
     Dosage: 150 MG
  10. CHLORHEXIDINE GLUCONATE [Concomitant]
     Active Substance: CHLORHEXIDINE GLUCONATE
     Dosage: UNK
  11. HYDROCODONE BITARTRATE AND ACETAMINOPHEN [Concomitant]
     Active Substance: ACETAMINOPHEN\HYDROCODONE BITARTRATE
     Dosage: 5 MG
  12. IBUPROFEN [Concomitant]
     Active Substance: IBUPROFEN
  13. METFORMIN HYDROCHLORIDE [Concomitant]
     Active Substance: METFORMIN HYDROCHLORIDE

REACTIONS (1)
  - Pain in jaw [Not Recovered/Not Resolved]
